FAERS Safety Report 22021988 (Version 2)
Quarter: 2023Q2

REPORT INFORMATION
  Report Type: Report from Study
  Country: GB (occurrence: GB)
  Receive Date: 20230222
  Receipt Date: 20230509
  Transmission Date: 20230722
  Serious: Yes (Hospitalization)
  Sender: FDA-Public Use
  Company Number: GB-TAKEDA-2023TUS017610

PATIENT
  Age: 15 Year
  Sex: Male

DRUGS (15)
  1. IDURSULFASE [Suspect]
     Active Substance: IDURSULFASE
     Indication: Mucopolysaccharidosis II
     Dosage: UNK
     Route: 042
     Dates: start: 20130507
  2. IDURSULFASE [Suspect]
     Active Substance: IDURSULFASE
     Dosage: 0.59 MILLIGRAM/KILOGRAM, 1/WEEK
     Route: 042
     Dates: start: 20151125
  3. LORATADINE [Concomitant]
     Active Substance: LORATADINE
     Indication: Premedication
     Route: 048
  4. LORATADINE [Concomitant]
     Active Substance: LORATADINE
     Indication: Pyrexia
     Dosage: UNK
     Route: 048
     Dates: start: 20170419
  5. ACETAMINOPHEN [Concomitant]
     Active Substance: ACETAMINOPHEN
     Indication: Premedication
     Dosage: UNK
     Route: 048
  6. UNSPECIFIED INGREDIENT [Concomitant]
     Active Substance: UNSPECIFIED INGREDIENT
     Indication: Back pain
     Dosage: UNK
     Route: 065
     Dates: start: 2016
  7. UNSPECIFIED INGREDIENT [Concomitant]
     Active Substance: UNSPECIFIED INGREDIENT
     Indication: Pain in extremity
  8. CETIRIZINE [Concomitant]
     Active Substance: CETIRIZINE HYDROCHLORIDE
     Dosage: UNK
     Route: 048
     Dates: start: 201603, end: 201603
  9. RANITIDINE [Concomitant]
     Active Substance: RANITIDINE
     Dosage: UNK
     Route: 048
     Dates: start: 20190222
  10. BECLOMETHASONE DIPROPIONATE [Concomitant]
     Active Substance: BECLOMETHASONE DIPROPIONATE
     Indication: Inhalation therapy
     Dosage: UNK
     Route: 065
     Dates: start: 20190522
  11. ALBUTEROL [Concomitant]
     Active Substance: ALBUTEROL
     Indication: Inhalation therapy
     Dosage: UNK
     Route: 065
     Dates: start: 20190522
  12. FEXOFENADINE [Concomitant]
     Active Substance: FEXOFENADINE HYDROCHLORIDE
     Indication: Multiple allergies
     Dosage: UNK
     Route: 048
     Dates: start: 20210518
  13. FLUTICASONE FUROATE [Concomitant]
     Active Substance: FLUTICASONE FUROATE
     Indication: Multiple allergies
     Dosage: UNK
     Route: 045
     Dates: start: 20210518
  14. DICLOFENAC [Concomitant]
     Active Substance: DICLOFENAC
     Indication: Pain
     Dosage: UNK
     Route: 048
     Dates: start: 2022
  15. OMEPRAZOLE [Concomitant]
     Active Substance: OMEPRAZOLE
     Indication: Gastrointestinal disorder
     Dosage: UNK
     Dates: start: 2022

REACTIONS (2)
  - Adenoidal hypertrophy [Recovered/Resolved]
  - Tonsillitis [Recovered/Resolved]

NARRATIVE: CASE EVENT DATE: 20200101
